FAERS Safety Report 8499101-0 (Version None)
Quarter: 2012Q2

REPORT INFORMATION
  Report Type: 
  Country: None (occurrence: None)
  Receive Date: 20120405
  Receipt Date: 20100202
  Transmission Date: 20120825
  Serious: Yes (Hospitalization)
  Sender: FDA-Public Use
  Company Number: PHHY2010US06152

PATIENT
  Age: 55 Year
  Sex: Male

DRUGS (7)
  1. ALLOPURINOL [Concomitant]
  2. CALCIUM WITH VITAMIN D (CALCIUM PHOSPHATE, CALCIUM SODIUM LACTATE, ERG [Concomitant]
  3. VITAMIN D [Concomitant]
  4. LAXOPRO [Concomitant]
  5. RECLAST [Suspect]
     Dosage: INFUSION
     Dates: start: 20090812
  6. CYMBALTA [Concomitant]
  7. CALCIUM CARBONATE [Concomitant]

REACTIONS (6)
  - MYALGIA [None]
  - BACK PAIN [None]
  - ANAEMIA [None]
  - FATIGUE [None]
  - MOVEMENT DISORDER [None]
  - DYSPNOEA [None]
